FAERS Safety Report 10605302 (Version 1)
Quarter: 2014Q4

REPORT INFORMATION
  Report Type: Spontaneous
  Country: US (occurrence: US)
  Receive Date: 20141124
  Receipt Date: 20141124
  Transmission Date: 20150529
  Serious: No
  Sender: FDA-Public Use
  Company Number: US-SA-2014SA118810

PATIENT
  Age: 82 Year
  Sex: Male

DRUGS (2)
  1. RENVELA [Suspect]
     Active Substance: SEVELAMER CARBONATE
     Indication: HYPERPHOSPHATAEMIA
     Dosage: FOUR RENVELA 800 MG TABLETS WITH EACH MEAL
     Route: 048
  2. RENVELA [Suspect]
     Active Substance: SEVELAMER CARBONATE
     Indication: HYPERPHOSPHATAEMIA
     Dosage: RENVELA 800 MG TABLETS, THREE TABLETS WITH EACH MEAL
     Route: 048

REACTIONS (1)
  - Hyperphosphataemia [Unknown]

NARRATIVE: CASE EVENT DATE: 20140807
